FAERS Safety Report 9878687 (Version 2)
Quarter: 2014Q1

REPORT INFORMATION
  Report Type: Spontaneous
  Country: None (occurrence: US)
  Receive Date: 20140206
  Receipt Date: 20140206
  Transmission Date: 20141002
  Serious: No
  Sender: FDA-Public Use
  Company Number: US-ALLERGAN-1307826US

PATIENT
  Age: 69 Year
  Sex: Female

DRUGS (2)
  1. BOTOX COSMETIC [Suspect]
     Indication: MIGRAINE
     Dosage: 32 UNITS, SINGLE
     Route: 030
     Dates: start: 20130503, end: 20130503
  2. BOTOX COSMETIC [Suspect]
     Dosage: UNK
     Dates: start: 2008, end: 2008

REACTIONS (3)
  - Visual impairment [Unknown]
  - Eyelid ptosis [Unknown]
  - Off label use [Unknown]
